FAERS Safety Report 8379762-7 (Version None)
Quarter: 2012Q2

REPORT INFORMATION
  Report Type: 
  Country: None (occurrence: None)
  Receive Date: 20120523
  Receipt Date: 20120518
  Transmission Date: 20120825
  Serious: Yes (Other)
  Sender: FDA-Public Use
  Company Number: US-ASTRAZENECA-2012SE32325

PATIENT

DRUGS (2)
  1. BRILINTA [Suspect]
     Route: 048
  2. PARADAXA [Suspect]
     Indication: ATRIAL FIBRILLATION

REACTIONS (1)
  - CEREBROVASCULAR ACCIDENT [None]
